FAERS Safety Report 4732809-9 (Version None)
Quarter: 2005Q3

REPORT INFORMATION
  Report Type: 
  Country: None (occurrence: None)
  Receive Date: 20050801
  Receipt Date: 20050718
  Transmission Date: 20060218
  Serious: Yes (Other)
  Sender: FDA-Public Use
  Company Number: 200505009

PATIENT
  Age: 22 Year
  Sex: Female

DRUGS (6)
  1. ALESION (EPINASTINE) [Suspect]
     Indication: RHINITIS
     Dosage: 20 MG DAILY PO
     Route: 048
     Dates: start: 20050329
  2. ASTRIC (ACICLOVIR) [Suspect]
     Indication: HERPES SIMPLEX
     Dosage: 1000 MG DAILY PO
     Route: 048
     Dates: start: 20050501, end: 20050501
  3. SEREVENT [Concomitant]
  4. KIPRES (MONTELUKAST) [Concomitant]
  5. THEO-DUR [Concomitant]
  6. PULMICORT [Concomitant]

REACTIONS (7)
  - ANAPHYLACTIC REACTION [None]
  - CONVULSION [None]
  - DRUG INTERACTION [None]
  - EYE IRRITATION [None]
  - FALL [None]
  - HERPES SIMPLEX [None]
  - PARALYSIS [None]
